FAERS Safety Report 10745331 (Version 2)
Quarter: 2015Q2

REPORT INFORMATION
  Report Type: Spontaneous
  Country: US (occurrence: None)
  Receive Date: 20150120
  Receipt Date: 20150420
  Transmission Date: 20150821
  Serious: No
  Sender: FDA-Public Use
  Company Number: AEGR000928

PATIENT
  Age: 49 Year
  Sex: Male
  Weight: 63 kg

DRUGS (8)
  1. BABY ASPIRIN (ACETYLSALICYLIC ACID) [Concomitant]
     Active Substance: ASPIRIN
  2. COREG [Concomitant]
     Active Substance: CARVEDILOL
  3. LIPITOR [Concomitant]
     Active Substance: ATORVASTATIN CALCIUM
  4. TRILIPIX [Concomitant]
     Active Substance: FENOFIBRIC ACID
  5. JANUMET [Concomitant]
     Active Substance: METFORMIN HYDROCHLORIDE\SITAGLIPTIN PHOSPHATE
  6. RANEXA (RANOLAZINE) [Concomitant]
  7. JUXTAPID [Suspect]
     Active Substance: LOMITAPIDE MESYLATE
     Indication: PRODUCT USED FOR UNKNOWN INDICATION
     Route: 048
     Dates: start: 20140930
  8. NIACIN (NICOTINIC ACID) [Concomitant]

REACTIONS (3)
  - Erectile dysfunction [None]
  - Product used for unknown indication [None]
  - Gastrointestinal disorder [None]

NARRATIVE: CASE EVENT DATE: 201501
